FAERS Safety Report 9196834 (Version 9)
Quarter: 2016Q4

REPORT INFORMATION
  Report Type: Report from Study
  Country: BR (occurrence: BR)
  Receive Date: 20130328
  Receipt Date: 20161103
  Transmission Date: 20170207
  Serious: Yes (Other)
  Sender: FDA-Public Use
  Company Number: PHHY2013BR028487

PATIENT
  Sex: Female
  Weight: 77.1 kg

DRUGS (7)
  1. ALENIA [Concomitant]
     Active Substance: BUDESONIDE\FORMOTEROL FUMARATE
     Indication: PRODUCT USED FOR UNKNOWN INDICATION
     Dosage: 1 DF, UNK
     Route: 065
  2. SANDOSTATIN LAR DEPOT [Suspect]
     Active Substance: OCTREOTIDE ACETATE
     Indication: ACROMEGALY
     Dosage: 20 MG, UNK
     Route: 030
     Dates: start: 200304
  3. SANDOSTATIN LAR DEPOT [Suspect]
     Active Substance: OCTREOTIDE ACETATE
     Dosage: 30 MG, UNK
     Route: 030
     Dates: start: 2003
  4. SYNTHROID [Concomitant]
     Active Substance: LEVOTHYROXINE SODIUM
     Indication: PRODUCT USED FOR UNKNOWN INDICATION
     Dosage: 150 MG, UNK
     Route: 065
  5. SANDOSTATIN LAR DEPOT [Suspect]
     Active Substance: OCTREOTIDE ACETATE
     Dosage: 20 MG, EVERY 45 DAYS
     Route: 030
  6. LEVOID [Concomitant]
     Active Substance: LEVOTHYROXINE
     Indication: THYROID DISORDER
     Route: 065
     Dates: start: 1993, end: 20160506
  7. METFORMIN [Concomitant]
     Active Substance: METFORMIN HYDROCHLORIDE
     Indication: PRODUCT USED FOR UNKNOWN INDICATION
     Dosage: 850 MG, UNK
     Route: 065

REACTIONS (12)
  - Vision blurred [Unknown]
  - Neoplasm progression [Unknown]
  - Blood cholesterol increased [Unknown]
  - Diabetes mellitus [Unknown]
  - Swelling [Recovering/Resolving]
  - Visual acuity reduced [Unknown]
  - Thyroid mass [Unknown]
  - Thyroglobulin increased [Unknown]
  - Cataract [Unknown]
  - Weight increased [Unknown]
  - Inappropriate schedule of drug administration [Unknown]
  - Hypertension [Unknown]

NARRATIVE: CASE EVENT DATE: 2016
